FAERS Safety Report 5335122-4 (Version None)
Quarter: 2007Q2

REPORT INFORMATION
  Report Type: 
  Country: None (occurrence: None)
  Receive Date: 20070525
  Receipt Date: 20070518
  Transmission Date: 20071010
  Serious: Yes (Other)
  Sender: FDA-Public Use
  Company Number: CH-ABBOTT-06P-151-0335640-00

PATIENT
  Age: 13 Year
  Sex: Male

DRUGS (1)
  1. VALPROIC ACID [Suspect]
     Indication: GRAND MAL CONVULSION
     Dosage: NOT REPORTED

REACTIONS (2)
  - EXTRADURAL HAEMATOMA [None]
  - PLATELET FUNCTION TEST ABNORMAL [None]
